FAERS Safety Report 4955202-2 (Version None)
Quarter: 2006Q1

REPORT INFORMATION
  Report Type: 
  Country: None (occurrence: None)
  Receive Date: 20060328
  Receipt Date: 20051026
  Transmission Date: 20060701
  Serious: Yes (Hospitalization)
  Sender: FDA-Public Use
  Company Number: HQWYE297228OCT05

PATIENT
  Sex: Male

DRUGS (6)
  1. ENBREL [Suspect]
     Indication: RHEUMATOID ARTHRITIS
     Route: 058
     Dates: start: 20051017, end: 20051017
  2. RHEUMATREX [Suspect]
     Indication: DRUG USE FOR UNKNOWN INDICATION
     Dosage: DOSE AND FREQUENCY NOT SPECIFIED
     Route: 048
     Dates: start: 20050705, end: 20051020
  3. ISCOTIN [Concomitant]
     Dates: start: 20021101, end: 20051020
  4. LOXOPROFEN SODIUM [Concomitant]
     Dates: start: 20021101, end: 20051020
  5. FOLIC ACID [Concomitant]
     Dates: start: 20050801, end: 20051020
  6. PREDNISOLONE [Concomitant]
     Dates: start: 20030201

REACTIONS (2)
  - PLEURAL EFFUSION [None]
  - PNEUMOTHORAX [None]
